FAERS Safety Report 5198889-4 (Version None)
Quarter: 2006Q4

REPORT INFORMATION
  Report Type: 
  Country: None (occurrence: None)
  Receive Date: 20060921
  Receipt Date: 20060221
  Transmission Date: 20070319
  Serious: Yes (Other)
  Sender: FDA-Public Use
  Company Number: 2006026116

PATIENT
  Sex: 0

DRUGS (2)
  1. ZYRTEC [Suspect]
     Indication: ILL-DEFINED DISORDER
  2. ALLEGRA [Suspect]
     Indication: ILL-DEFINED DISORDER

REACTIONS (1)
  - MUSCLE SPASMS [None]
